FAERS Safety Report 9732560 (Version 3)
Quarter: 2014Q2

REPORT INFORMATION
  Report Type: Spontaneous
  Country: FR (occurrence: FR)
  Receive Date: 20131204
  Receipt Date: 20140421
  Transmission Date: 20141212
  Serious: Yes (Other)
  Sender: FDA-Public Use
  Company Number: FR-ELI_LILLY_AND_COMPANY-FR201310008770

PATIENT
  Age: 46 Year
  Sex: Female

DRUGS (7)
  1. ZYPADHERA [Suspect]
     Indication: BIPOLAR I DISORDER
     Dosage: 210 MG, EVERY 2 WEEKS
     Route: 030
     Dates: start: 20131004, end: 20131019
  2. AKINETON                           /00079501/ [Concomitant]
     Indication: PRODUCT USED FOR UNKNOWN INDICATION
     Dosage: 4 MG, UNKNOWN
     Route: 048
     Dates: start: 20131017
  3. DEPAKINE                           /00228501/ [Concomitant]
     Indication: PRODUCT USED FOR UNKNOWN INDICATION
     Dosage: 200 MG, UNKNOWN
     Route: 048
     Dates: start: 20131017, end: 20131022
  4. DOLIPRANE [Concomitant]
     Indication: PRODUCT USED FOR UNKNOWN INDICATION
     Dosage: 1000 MG, TID
     Route: 048
     Dates: start: 20131017
  5. DUPHALAC                           /00163401/ [Concomitant]
     Indication: PRODUCT USED FOR UNKNOWN INDICATION
     Dosage: 10 G, TID
     Route: 048
     Dates: start: 20131017
  6. PRAZEPAM [Concomitant]
     Indication: PRODUCT USED FOR UNKNOWN INDICATION
     Dosage: 10 MG, TID
     Route: 048
     Dates: start: 20131017, end: 20131022
  7. PROPRANOLOL [Concomitant]
     Indication: PRODUCT USED FOR UNKNOWN INDICATION
     Dosage: 40 MG, BID
     Route: 048
     Dates: start: 20131017

REACTIONS (3)
  - Sedation [Recovered/Resolved]
  - Depression [Unknown]
  - Off label use [Unknown]
